FAERS Safety Report 10151142 (Version 3)
Quarter: 2014Q2

REPORT INFORMATION
  Report Type: Report from Study
  Country: AU (occurrence: AU)
  Receive Date: 20140502
  Receipt Date: 20140516
  Transmission Date: 20141212
  Serious: Yes (Other)
  Sender: FDA-Public Use
  Company Number: PHHY2014AU050218

PATIENT
  Age: 57 Year
  Sex: Female

DRUGS (7)
  1. CLOZARIL [Suspect]
     Indication: SCHIZOPHRENIA, PARANOID TYPE
     Dosage: 12.5 MG, UNK
     Dates: start: 20140321
  2. CLOZARIL [Suspect]
     Dosage: UNK
     Dates: start: 20140324
  3. CLOZARIL [Suspect]
     Dosage: 275 MG
     Dates: start: 20140413, end: 201404
  4. CLOZARIL [Suspect]
     Dosage: UNK UKN, UNK
     Dates: end: 20140506
  5. ATENOLOL [Concomitant]
     Dosage: 25 MG, MANE
  6. OLANZAPINE [Concomitant]
     Dosage: 15 MG, NOCTE
  7. SEVIKAR HCT [Concomitant]
     Dosage: 40 MG/ 10 MG/ 25 MG

REACTIONS (29)
  - Hypoxia [Unknown]
  - Myocarditis [Unknown]
  - C-reactive protein increased [Recovered/Resolved]
  - Cardiomegaly [Unknown]
  - Aortic arteriosclerosis [Unknown]
  - Mitral valve sclerosis [Unknown]
  - Brain natriuretic peptide increased [Unknown]
  - Blood magnesium decreased [Recovered/Resolved]
  - Blood sodium decreased [Not Recovered/Not Resolved]
  - Oropharyngeal pain [Unknown]
  - Blood chloride decreased [Not Recovered/Not Resolved]
  - Productive cough [Unknown]
  - Lung disorder [Unknown]
  - Malaise [Unknown]
  - Dyspnoea [Unknown]
  - Blood osmolarity decreased [Recovered/Resolved]
  - Blood bicarbonate increased [Unknown]
  - Blood albumin decreased [Not Recovered/Not Resolved]
  - Blood calcium decreased [Recovered/Resolved]
  - Tachycardia [Unknown]
  - Blood glucose increased [Not Recovered/Not Resolved]
  - Blood alkaline phosphatase increased [Unknown]
  - White blood cell count increased [Unknown]
  - Antipsychotic drug level decreased [Unknown]
  - Neutrophil count increased [Unknown]
  - Hypotension [Recovered/Resolved]
  - Antipsychotic drug level increased [Unknown]
  - Lymphocyte percentage decreased [Not Recovered/Not Resolved]
  - Electrocardiogram abnormal [Unknown]
